FAERS Safety Report 8220935-1 (Version None)
Quarter: 2012Q1

REPORT INFORMATION
  Report Type: 
  Country: None (occurrence: None)
  Receive Date: 20120320
  Receipt Date: 20120313
  Transmission Date: 20120608
  Serious: Yes (Death, Other)
  Sender: FDA-Public Use
  Company Number: DE-CELGENEUS-062-50794-11060155

PATIENT
  Age: 76 Year
  Sex: Male

DRUGS (47)
  1. ETOPOSIDE [Suspect]
     Dosage: 203 MILLIGRAM
     Route: 065
     Dates: start: 20110517, end: 20110519
  2. METOCLOPRAMIDE [Concomitant]
     Dosage: 15 MILLIGRAM
     Route: 048
     Dates: start: 20110509, end: 20110514
  3. METOCLOPRAMIDE [Concomitant]
     Dosage: 15 MILLIGRAM
     Route: 048
     Dates: start: 20110523, end: 20110527
  4. CODEINE SUL TAB [Concomitant]
     Indication: COUGH
     Dosage: 1 MILLIGRAM
     Route: 048
     Dates: start: 20110509, end: 20110514
  5. DURAGESIC-100 [Concomitant]
     Route: 061
     Dates: start: 20110514, end: 20110514
  6. METRONIDAZOLE [Concomitant]
     Indication: INFECTION PROPHYLAXIS
     Dosage: 800 MILLIGRAM
     Route: 048
     Dates: start: 20110516, end: 20110516
  7. VIDAZA [Suspect]
     Dosage: 200 MILLIGRAM
     Route: 050
     Dates: start: 20110517, end: 20110521
  8. INSUMAN RAPID [Concomitant]
     Dosage: 6 IU (INTERNATIONAL UNIT)
     Route: 058
     Dates: start: 20110522, end: 20110522
  9. PANTOPRAZOLE [Concomitant]
     Dosage: 80 MILLIGRAM
     Route: 041
     Dates: start: 20110526, end: 20110527
  10. VORICONAZOLE [Concomitant]
     Indication: INFECTION PROPHYLAXIS
     Dosage: 200 MILLIGRAM
     Route: 048
     Dates: start: 20110509, end: 20110509
  11. VORICONAZOLE [Concomitant]
     Dosage: 400 MILLIGRAM
     Route: 048
     Dates: start: 20110517, end: 20110527
  12. METRONIDAZOLE [Concomitant]
     Dosage: 1200 MILLIGRAM
     Route: 048
     Dates: start: 20110521, end: 20110521
  13. ALBUMIN (HUMAN) [Concomitant]
     Indication: HYPOALBUMINAEMIA
     Dosage: 20 PERCENT
     Route: 041
     Dates: start: 20110527, end: 20110527
  14. METOCLOPRAMIDE [Concomitant]
     Dosage: 4 MILLIGRAM
     Route: 048
     Dates: start: 20110527, end: 20110527
  15. ACETYLCYSTEINE [Concomitant]
     Dosage: 600 MILLIGRAM
     Route: 048
     Dates: start: 20110521, end: 20110527
  16. RASBURICASE [Concomitant]
     Indication: PROPHYLAXIS
     Dosage: 7.5 MILLIGRAM
     Route: 041
     Dates: start: 20110522, end: 20110523
  17. NORMAL INSULIN [Concomitant]
     Dosage: 20 IU (INTERNATIONAL UNIT)
     Route: 058
     Dates: start: 20110522, end: 20110522
  18. MIDAZOLAM [Concomitant]
     Dosage: 75 MILLIGRAM
     Route: 041
     Dates: start: 20110528, end: 20110528
  19. MOXIFLOXACIN [Concomitant]
     Indication: INFECTION PROPHYLAXIS
     Dosage: 400 MILLIGRAM
     Route: 048
     Dates: start: 20110509, end: 20110521
  20. DURAGESIC-100 [Concomitant]
     Route: 061
     Dates: start: 20110524, end: 20110524
  21. FUROSEMIDE [Concomitant]
     Indication: PROPHYLAXIS
     Dosage: 80 MILLIGRAM
     Route: 041
     Dates: start: 20110519, end: 20110520
  22. NORMAL INSULIN [Concomitant]
     Dosage: 6 IU (INTERNATIONAL UNIT)
     Route: 058
     Dates: start: 20110523, end: 20110523
  23. KETAMINE HCL [Concomitant]
     Indication: SEDATION
     Dosage: 1 GRAM
     Route: 041
     Dates: start: 20110528, end: 20110528
  24. SUPRA [Concomitant]
     Indication: SEDATION
     Dosage: 5 MILLIGRAM
     Route: 041
     Dates: start: 20110528, end: 20110528
  25. IDARUBICIN HCL [Suspect]
     Dosage: 24 MILLIGRAM
     Route: 065
     Dates: start: 20110517, end: 20110519
  26. DURAGESIC-100 [Concomitant]
     Indication: SPLENIC INFARCTION
     Route: 061
     Dates: start: 20110511, end: 20110511
  27. DURAGESIC-100 [Concomitant]
     Route: 061
     Dates: start: 20110520, end: 20110520
  28. METRONIDAZOLE [Concomitant]
     Dosage: 1200 MILLIGRAM
     Route: 048
     Dates: start: 20110517, end: 20110517
  29. ALDACTONE [Concomitant]
     Indication: PROPHYLAXIS
     Dosage: 200 MILLIGRAM
     Route: 048
     Dates: start: 20110521, end: 20110522
  30. ETO [Concomitant]
     Indication: SEDATION
     Dosage: 10 MILLIGRAM
     Route: 041
     Dates: start: 20110528, end: 20110528
  31. PANTOPRAZOLE [Concomitant]
     Dosage: 80 MILLIGRAM
     Route: 041
     Dates: start: 20110516, end: 20110524
  32. SOTALOL HCL [Concomitant]
     Route: 048
     Dates: start: 20110509, end: 20110527
  33. CODEINE SUL TAB [Concomitant]
     Dosage: 1 MILLIGRAM
     Route: 048
     Dates: start: 20110523, end: 20110527
  34. FUROSEMIDE [Concomitant]
     Dosage: 120 MILLIGRAM
     Route: 041
     Dates: start: 20110521, end: 20110521
  35. FUROSEMIDE [Concomitant]
     Dosage: 80 MILLIGRAM
     Route: 041
     Dates: start: 20110527, end: 20110528
  36. NORMAL INSULIN [Concomitant]
     Dosage: 20 IU (INTERNATIONAL UNIT)
     Route: 058
     Dates: start: 20110523, end: 20110523
  37. NORMAL INSULIN [Concomitant]
     Dosage: 5 IU (INTERNATIONAL UNIT)
     Route: 058
     Dates: start: 20110523, end: 20110523
  38. DOBUTAMINE HCL [Concomitant]
     Indication: SEDATION
     Dosage: 250 MILLIGRAM
     Route: 041
     Dates: start: 20110528, end: 20110528
  39. INSUMAN RAPID [Concomitant]
     Dosage: 50 IU (INTERNATIONAL UNIT)
     Route: 058
     Dates: start: 20110527, end: 20110527
  40. PANTOPRAZOLE [Concomitant]
     Dosage: 80 MILLIGRAM
     Route: 041
     Dates: start: 20110509, end: 20110514
  41. MOXIFLOXACIN [Concomitant]
     Dosage: 400 MILLIGRAM
     Route: 048
     Dates: start: 20110523, end: 20110527
  42. FUROSEMIDE [Concomitant]
     Dosage: 160 MILLIGRAM
     Route: 041
     Dates: start: 20110522, end: 20110523
  43. POTASSIUM CHLORIDE [Concomitant]
     Indication: PROPHYLAXIS
     Dosage: 50 MILLIMOLE
     Route: 041
     Dates: start: 20110527, end: 20110528
  44. ACETYLCYSTEINE [Concomitant]
     Indication: COUGH
     Dosage: 600 MILLIGRAM
     Route: 048
     Dates: start: 20110509, end: 20110514
  45. DURAGESIC-100 [Concomitant]
     Route: 061
     Dates: start: 20110517, end: 20110517
  46. FUROSEMIDE [Concomitant]
     Dosage: 40 MILLIGRAM
     Route: 048
     Dates: start: 20110517, end: 20110518
  47. MIDAZOLAM [Concomitant]
     Indication: SEDATION
     Dosage: 15 MILLIGRAM
     Route: 041
     Dates: start: 20110528, end: 20110528

REACTIONS (1)
  - SEPSIS [None]
